FAERS Safety Report 17690518 (Version 4)
Quarter: 2020Q3

REPORT INFORMATION
  Report Type: Report from Study
  Country: None (occurrence: US)
  Receive Date: 20200421
  Receipt Date: 20200806
  Transmission Date: 20201102
  Serious: Yes (Other)
  Sender: FDA-Public Use
  Company Number: US-ABBVIE-20K-163-3368395-00

PATIENT
  Sex: Male
  Weight: 106.69 kg

DRUGS (13)
  1. VITAMIN D3 [Concomitant]
     Active Substance: CHOLECALCIFEROL
     Indication: PRODUCT USED FOR UNKNOWN INDICATION
  2. VYVANSE [Concomitant]
     Active Substance: LISDEXAMFETAMINE DIMESYLATE
     Indication: PRODUCT USED FOR UNKNOWN INDICATION
  3. LIPITOR [Concomitant]
     Active Substance: ATORVASTATIN CALCIUM
     Indication: PRODUCT USED FOR UNKNOWN INDICATION
  4. CYCLOBENZAPRINE HYDROCHLORIDE. [Concomitant]
     Active Substance: CYCLOBENZAPRINE HYDROCHLORIDE
     Indication: PRODUCT USED FOR UNKNOWN INDICATION
  5. VITAMIN B12 [Concomitant]
     Active Substance: CYANOCOBALAMIN
     Indication: PRODUCT USED FOR UNKNOWN INDICATION
  6. VENCLEXTA [Suspect]
     Active Substance: VENETOCLAX
     Route: 048
     Dates: start: 202003, end: 202003
  7. VENCLEXTA [Suspect]
     Active Substance: VENETOCLAX
     Route: 048
     Dates: start: 202003, end: 202003
  8. VITAMIN C [Concomitant]
     Active Substance: ASCORBIC ACID
     Indication: PRODUCT USED FOR UNKNOWN INDICATION
  9. VENCLEXTA [Suspect]
     Active Substance: VENETOCLAX
     Indication: LYMPHOCYTIC LEUKAEMIA
     Route: 048
     Dates: start: 20200225, end: 202003
  10. SINGULAIR [Concomitant]
     Active Substance: MONTELUKAST SODIUM
     Indication: PRODUCT USED FOR UNKNOWN INDICATION
  11. VENCLEXTA [Suspect]
     Active Substance: VENETOCLAX
     Route: 048
     Dates: start: 202003
  12. FISH OIL [Concomitant]
     Active Substance: FISH OIL
     Indication: PRODUCT USED FOR UNKNOWN INDICATION
  13. ACYCLOVIR. [Concomitant]
     Active Substance: ACYCLOVIR
     Indication: ANTIVIRAL TREATMENT

REACTIONS (11)
  - Deafness unilateral [Recovered/Resolved]
  - Ear pain [Recovered/Resolved]
  - Ear infection [Recovered/Resolved]
  - Pyrexia [Recovered/Resolved]
  - Anosmia [Unknown]
  - Ear pain [Recovered/Resolved]
  - Exposure to SARS-CoV-2 [Recovered/Resolved]
  - Ageusia [Recovered/Resolved]
  - Exposure to SARS-CoV-2 [Unknown]
  - Deafness unilateral [Recovered/Resolved]
  - Cough [Recovered/Resolved]

NARRATIVE: CASE EVENT DATE: 2020
